FAERS Safety Report 16873384 (Version 1)
Quarter: 2019Q4

REPORT INFORMATION
  Report Type: Spontaneous
  Country: US (occurrence: US)
  Receive Date: 20191001
  Receipt Date: 20191001
  Transmission Date: 20200122
  Serious: Yes (Hospitalization)
  Sender: FDA-Public Use
  Company Number: US-ROCHE-2414075

PATIENT
  Age: 56 Year
  Sex: Female

DRUGS (1)
  1. PULMOZYME [Suspect]
     Active Substance: DORNASE ALFA
     Indication: PRODUCT USED FOR UNKNOWN INDICATION
     Dosage: ONGOING?AMPOULE 1 MG/ML
     Route: 055
     Dates: start: 20180101

REACTIONS (1)
  - Pseudomonas infection [Unknown]

NARRATIVE: CASE EVENT DATE: 20190601
